FAERS Safety Report 5214872-4 (Version None)
Quarter: 2007Q1

REPORT INFORMATION
  Report Type: 
  Country: None (occurrence: None)
  Receive Date: 20070122
  Receipt Date: 20070122
  Transmission Date: 20070707
  Serious: Yes (Other)
  Sender: FDA-Public Use
  Company Number: None

PATIENT
  Sex: Male
  Weight: 68 kg

DRUGS (1)
  1. CLONAZEPAM [Suspect]
     Indication: TREMOR
     Dosage: 1MG BID PO
     Route: 048
     Dates: start: 20060828, end: 20060829

REACTIONS (5)
  - DYSARTHRIA [None]
  - GAIT DISTURBANCE [None]
  - MENTAL STATUS CHANGES [None]
  - PUPILLARY DISORDER [None]
  - SUDDEN ONSET OF SLEEP [None]
